FAERS Safety Report 11687240 (Version 5)
Quarter: 2015Q4

REPORT INFORMATION
  Report Type: Spontaneous
  Country: TH (occurrence: None)
  Receive Date: 20151030
  Receipt Date: 20151118
  Transmission Date: 20160304
  Serious: Yes (Other)
  Sender: FDA-Public Use
  Company Number: TH-MDT-ADR-2015-02057

PATIENT

DRUGS (1)
  1. LIORESAL [Suspect]
     Active Substance: BACLOFEN
     Indication: MUSCLE SPASTICITY
     Dosage: 200 MCG/DAY

REACTIONS (4)
  - Muscle spasticity [None]
  - Fall [None]
  - Lower limb fracture [None]
  - Muscle spasms [None]
